FAERS Safety Report 8976803 (Version 2)
Quarter: 2013Q1

REPORT INFORMATION
  Report Type: Spontaneous
  Country: US (occurrence: US)
  Receive Date: 20121220
  Receipt Date: 20130124
  Transmission Date: 20140127
  Serious: No
  Sender: FDA-Public Use
  Company Number: US-PFIZER INC-2012320426

PATIENT
  Sex: Male

DRUGS (4)
  1. ALAVERT [Suspect]
     Indication: SNEEZING
     Dosage: UNK
  2. ALAVERT [Suspect]
     Indication: RHINORRHOEA
  3. ALAVERT [Suspect]
     Indication: EYE DISCHARGE
  4. ALAVERT [Suspect]
     Indication: EYE PRURITUS

REACTIONS (1)
  - Drug ineffective [Unknown]
